FAERS Safety Report 20952439 (Version 1)
Quarter: 2022Q2

REPORT INFORMATION
  Report Type: Spontaneous
  Country: US (occurrence: None)
  Receive Date: 20220612
  Receipt Date: 20220612
  Transmission Date: 20220720
  Serious: No
  Sender: FDA-Public Use
  Company Number: None

PATIENT
  Age: 64 Year
  Sex: Male
  Weight: 86.85 kg

DRUGS (5)
  1. LOSARTAN POTASSIUM [Suspect]
     Active Substance: LOSARTAN POTASSIUM
     Indication: Blood pressure increased
     Dosage: OTHER QUANTITY : 45 TABLET(S);?FREQUENCY : DAILY;?
     Route: 048
     Dates: start: 20220612, end: 20220612
  2. ATENOLOL [Concomitant]
     Active Substance: ATENOLOL
  3. AZELASTINE HYDROCHLORIDE [Concomitant]
     Active Substance: AZELASTINE HYDROCHLORIDE
  4. CLARITIN [Concomitant]
     Active Substance: LORATADINE
  5. multiple vitamins and minerals [Concomitant]

REACTIONS (3)
  - Product substitution issue [None]
  - Nausea [None]
  - Abdominal discomfort [None]

NARRATIVE: CASE EVENT DATE: 20220612
